FAERS Safety Report 8771321 (Version 1)
Quarter: 2012Q4

REPORT INFORMATION
  Report Type: 
  Country: US (occurrence: US)
  Receive Date: 20120904
  Receipt Date: 20120904
  Transmission Date: 20130627
  Serious: Yes (Other)
  Sender: FDA-Public Use
  Company Number: US-PFIZER INC-2012214983

PATIENT
  Age: 37 Year
  Sex: Male

DRUGS (1)
  1. ZOSYN [Suspect]
     Indication: URINARY TRACT INFECTION
     Dosage: UNK

REACTIONS (3)
  - Haemolytic anaemia [Recovered/Resolved]
  - Carboxyhaemoglobinaemia [Recovered/Resolved]
  - Methaemoglobinaemia [Recovered/Resolved]
